FAERS Safety Report 13507694 (Version 1)
Quarter: 2017Q2

REPORT INFORMATION
  Report Type: Spontaneous
  Country: US (occurrence: US)
  Receive Date: 20170503
  Receipt Date: 20170503
  Transmission Date: 20170830
  Serious: Yes (Disabling)
  Sender: FDA-Public Use
  Company Number: None

PATIENT
  Age: 56 Year
  Sex: Female
  Weight: 54 kg

DRUGS (10)
  1. CIPROFLOXACIN 250 TABLETS [Suspect]
     Active Substance: CIPROFLOXACIN
     Indication: URINARY TRACT INFECTION
     Dosage: ?          QUANTITY:14 TABLET(S);?EVERY 12 HOURS ORAL
     Route: 048
     Dates: start: 20170203, end: 20170217
  2. ZYRTEC [Concomitant]
     Active Substance: CETIRIZINE HYDROCHLORIDE
  3. MAGNESIUM [Concomitant]
     Active Substance: MAGNESIUM
  4. SYNTHROID [Concomitant]
     Active Substance: LEVOTHYROXINE SODIUM
  5. ZANTAC [Concomitant]
     Active Substance: RANITIDINE HYDROCHLORIDE
  6. CIPROFLOXACIN 250 TABLETS [Suspect]
     Active Substance: CIPROFLOXACIN
     Indication: CYSTITIS
     Dosage: ?          QUANTITY:14 TABLET(S);?EVERY 12 HOURS ORAL
     Route: 048
     Dates: start: 20170203, end: 20170217
  7. L-LYSINE [Concomitant]
     Active Substance: LYSINE
  8. STELARA [Concomitant]
     Active Substance: USTEKINUMAB
  9. IBUPROFEN. [Concomitant]
     Active Substance: IBUPROFEN
  10. ALIGN [Concomitant]
     Active Substance: BIFIDOBACTERIUM LONGUM SUBSP. INFANTIS

REACTIONS (2)
  - Tendonitis [None]
  - Abasia [None]

NARRATIVE: CASE EVENT DATE: 20170312
